FAERS Safety Report 11632621 (Version 2)
Quarter: 2015Q4

REPORT INFORMATION
  Report Type: Report from Study
  Country: US (occurrence: US)
  Receive Date: 20151015
  Receipt Date: 20151203
  Transmission Date: 20160304
  Serious: Yes (Hospitalization)
  Sender: FDA-Public Use
  Company Number: US-BIOGENIDEC-2015BI138287

PATIENT
  Age: 61 Year
  Sex: Male

DRUGS (1)
  1. TECFIDERA [Suspect]
     Active Substance: DIMETHYL FUMARATE
     Indication: RELAPSING-REMITTING MULTIPLE SCLEROSIS
     Dates: start: 20130718, end: 20150910

REACTIONS (6)
  - Pneumonia [Recovered/Resolved]
  - Staphylococcal infection [Recovered/Resolved]
  - Hallucination [Recovered/Resolved]
  - Splenic infection [Recovered/Resolved]
  - Subcutaneous abscess [Recovered/Resolved]
  - Confusional state [Recovered/Resolved]

NARRATIVE: CASE EVENT DATE: 2015
